FAERS Safety Report 18460643 (Version 2)
Quarter: 2020Q4

REPORT INFORMATION
  Report Type: Report from Study
  Country: US (occurrence: US)
  Receive Date: 20201103
  Receipt Date: 20201207
  Transmission Date: 20210114
  Serious: Yes (Death, Hospitalization)
  Sender: FDA-Public Use
  Company Number: US-ROCHE-2702031

PATIENT
  Age: 71 Year
  Sex: Female
  Weight: 129.3 kg

DRUGS (5)
  1. KYTRIL [Concomitant]
     Active Substance: GRANISETRON HYDROCHLORIDE
     Indication: NAUSEA
     Route: 048
     Dates: start: 20201015, end: 20201015
  2. ATEZOLIZUMAB. [Suspect]
     Active Substance: ATEZOLIZUMAB
     Indication: ENDOMETRIAL CANCER
     Dosage: 08/OCT/2020, RECEIVED MOST RECENT DOSE
     Route: 042
     Dates: start: 20200514
  3. BEVACIZUMAB. [Suspect]
     Active Substance: BEVACIZUMAB
     Indication: ENDOMETRIAL CANCER
     Dosage: MOST RECENT DOSE ON 27/AUG/2020
     Route: 042
     Dates: start: 20200514
  4. RUCAPARIB [Suspect]
     Active Substance: RUCAPARIB
     Indication: ENDOMETRIAL CANCER
     Dosage: MOST RECENT DOSE ON 21/OCT/2020  (500 MG TWICE IN A DAY)
     Route: 048
     Dates: start: 20200514
  5. KAOPECTATE [BISMUTH SUBSALICYLATE] [Concomitant]
     Indication: DIARRHOEA
     Dates: start: 201910, end: 20201022

REACTIONS (2)
  - Gastrointestinal perforation [Fatal]
  - Sepsis [Fatal]

NARRATIVE: CASE EVENT DATE: 20201022
